FAERS Safety Report 21627696 (Version 1)
Quarter: 2022Q4

REPORT INFORMATION
  Report Type: Spontaneous
  Country: US (occurrence: US)
  Receive Date: 20221122
  Receipt Date: 20221122
  Transmission Date: 20230112
  Serious: No
  Sender: FDA-Public Use
  Company Number: US-Adare-2021-US-000108

PATIENT
  Age: 6 Year
  Sex: Female

DRUGS (1)
  1. DEXMETHYLPHENIDATE HYDROCHLORIDE [Suspect]
     Active Substance: DEXMETHYLPHENIDATE HYDROCHLORIDE
     Dosage: OPENING THE CAPSULES AND SPRINKLING THEM IN YOGURT
     Route: 048

REACTIONS (1)
  - Wrong technique in product usage process [Unknown]
